FAERS Safety Report 11095675 (Version 1)
Quarter: 2015Q2

REPORT INFORMATION
  Report Type: Spontaneous
  Country: US (occurrence: US)
  Receive Date: 20150506
  Receipt Date: 20150506
  Transmission Date: 20150821
  Serious: No
  Sender: FDA-Public Use
  Company Number: US-ASTRAZENECA-2015SE40182

PATIENT
  Sex: Female

DRUGS (2)
  1. BYDUREON [Suspect]
     Active Substance: EXENATIDE
     Indication: TYPE 2 DIABETES MELLITUS
     Route: 058
     Dates: start: 20150421
  2. INSULIN UNSPECIFIED [Concomitant]

REACTIONS (4)
  - Malaise [Unknown]
  - Migraine [Unknown]
  - Vomiting [Unknown]
  - Nausea [Unknown]
